FAERS Safety Report 4996024-6 (Version None)
Quarter: 2006Q2

REPORT INFORMATION
  Report Type: 
  Country: None (occurrence: None)
  Receive Date: 20060504
  Receipt Date: 20060424
  Transmission Date: 20061013
  Serious: Yes (Hospitalization)
  Sender: FDA-Public Use
  Company Number: 2006-04-1671

PATIENT
  Age: 77 Year
  Sex: Male
  Weight: 76 kg

DRUGS (2)
  1. REBETOL [Suspect]
     Indication: HEPATITIS C
     Dosage: 1000 MG QD ORAL
     Route: 048
     Dates: end: 20060320
  2. INTRON A [Suspect]
     Indication: HEPATITIS C
     Dates: start: 20060215, end: 20060322

REACTIONS (3)
  - CARDIAC FAILURE [None]
  - LIVER DISORDER [None]
  - PANCYTOPENIA [None]
